FAERS Safety Report 4656459-8 (Version None)
Quarter: 2005Q2

REPORT INFORMATION
  Report Type: 
  Country: None (occurrence: None)
  Receive Date: 20050509
  Receipt Date: 20050428
  Transmission Date: 20051028
  Serious: Yes (Hospitalization)
  Sender: FDA-Public Use
  Company Number: US-AMGEN-US129840

PATIENT
  Age: 29 Year
  Sex: Female

DRUGS (7)
  1. SENSIPAR [Suspect]
     Indication: HYPERPARATHYROIDISM SECONDARY
     Route: 048
     Dates: start: 20040623
  2. ATENOLOL [Concomitant]
     Dates: start: 20050425
  3. RENAGEL [Concomitant]
     Dates: start: 20040629
  4. NEXIUM [Concomitant]
     Dates: start: 20040303
  5. COLACE [Concomitant]
     Dates: start: 20040303
  6. ZOLOFT [Concomitant]
     Dates: start: 20040303
  7. CALCIUM CARBONATE [Concomitant]

REACTIONS (5)
  - BLOOD PARATHYROID HORMONE INCREASED [None]
  - HAEMATEMESIS [None]
  - NAUSEA [None]
  - OESOPHAGITIS [None]
  - VOMITING [None]
